FAERS Safety Report 7463733-9 (Version None)
Quarter: 2011Q2

REPORT INFORMATION
  Report Type: 
  Country: None (occurrence: None)
  Receive Date: 20110506
  Receipt Date: 20110503
  Transmission Date: 20111010
  Serious: Yes (Death)
  Sender: FDA-Public Use
  Company Number: US-AMGEN-USASP2011023185

PATIENT
  Sex: Male

DRUGS (2)
  1. NPLATE [Suspect]
     Indication: IDIOPATHIC THROMBOCYTOPENIC PURPURA
     Dates: start: 20100408
  2. CORTICOSTEROIDS [Concomitant]
     Dosage: UNK
     Dates: start: 20050613

REACTIONS (1)
  - CARDIAC FAILURE CONGESTIVE [None]
